FAERS Safety Report 10224295 (Version 2)
Quarter: 2014Q2

REPORT INFORMATION
  Report Type: Spontaneous
  Country: US (occurrence: US)
  Receive Date: 20140609
  Receipt Date: 20140627
  Transmission Date: 20141212
  Serious: Yes (Other)
  Sender: FDA-Public Use
  Company Number: US-PFIZER INC-2014156155

PATIENT
  Sex: Female

DRUGS (2)
  1. CHANTIX [Suspect]
     Indication: SMOKING CESSATION THERAPY
     Dosage: UNK
  2. ASPIRIN [Concomitant]
     Dosage: 81 MG, UNK

REACTIONS (9)
  - Renal disorder [Unknown]
  - Nausea [Unknown]
  - Fear [Unknown]
  - Depression [Unknown]
  - Drug ineffective [Unknown]
  - Irritability [Unknown]
  - Agitation [Unknown]
  - Hostility [Unknown]
  - Feeling abnormal [Unknown]
